FAERS Safety Report 14942359 (Version 2)
Quarter: 2018Q3

REPORT INFORMATION
  Report Type: Report from Study
  Country: ES (occurrence: ES)
  Receive Date: 20180528
  Receipt Date: 20180824
  Transmission Date: 20181010
  Serious: Yes (Hospitalization)
  Sender: FDA-Public Use
  Company Number: ES-VELOXIS PHARMACEUTICALS, INC.-2018VELES0964

PATIENT
  Age: 64 Year
  Sex: Male
  Weight: 71 kg

DRUGS (6)
  1. EVEROLIMUS. [Concomitant]
     Active Substance: EVEROLIMUS
     Indication: LIVER TRANSPLANT
  2. ENVARSUS XR [Suspect]
     Active Substance: TACROLIMUS
     Indication: LIVER TRANSPLANT
     Dosage: 6 MG, QD
     Route: 048
     Dates: start: 20180407, end: 20180410
  3. MYCOPHENOLATE MOFETIL. [Concomitant]
     Active Substance: MYCOPHENOLATE MOFETIL
     Indication: LIVER TRANSPLANT
  4. PROGRAF [Suspect]
     Active Substance: TACROLIMUS\TACROLIMUS ANHYDROUS
     Dosage: UNK, UNK
     Dates: start: 20180410, end: 20180419
  5. PROGRAF [Suspect]
     Active Substance: TACROLIMUS\TACROLIMUS ANHYDROUS
     Indication: LIVER TRANSPLANT
     Dosage: UNK, UNK
     Route: 065
     Dates: start: 20180403, end: 20180406
  6. ENVARSUS XR [Suspect]
     Active Substance: TACROLIMUS
     Dosage: 6 MG, QD
     Route: 048
     Dates: start: 20180420, end: 20180429

REACTIONS (7)
  - Agitation [Unknown]
  - Parkinsonism [Recovered/Resolved with Sequelae]
  - Ataxia [Recovered/Resolved with Sequelae]
  - Respiratory failure [Unknown]
  - Lung infection [Unknown]
  - Hepatic enzyme increased [Unknown]
  - Confusional state [Unknown]

NARRATIVE: CASE EVENT DATE: 201804
